FAERS Safety Report 8132935-0 (Version None)
Quarter: 2012Q1

REPORT INFORMATION
  Report Type: 
  Country: None (occurrence: None)
  Receive Date: 20120213
  Receipt Date: 20120208
  Transmission Date: 20120608
  Serious: Yes (Other)
  Sender: FDA-Public Use
  Company Number: DE-ROCHE-1038882

PATIENT
  Age: 85 Year
  Sex: Female

DRUGS (2)
  1. MABTHERA [Suspect]
     Indication: RHEUMATOID ARTHRITIS
     Route: 042
     Dates: end: 20100101
  2. MABTHERA [Suspect]
     Route: 042
     Dates: start: 20120201

REACTIONS (3)
  - SLEEP DISORDER [None]
  - DISORIENTATION [None]
  - CONFUSIONAL STATE [None]
